FAERS Safety Report 14572718 (Version 2)
Quarter: 2018Q1

REPORT INFORMATION
  Report Type: Spontaneous
  Country: DE (occurrence: DE)
  Receive Date: 20180226
  Receipt Date: 20180327
  Transmission Date: 20180509
  Serious: Yes (Hospitalization)
  Sender: FDA-Public Use
  Company Number: DE-PFIZER INC-2018080536

PATIENT
  Age: 65 Year
  Sex: Male
  Weight: 98 kg

DRUGS (7)
  1. BRILIQUE [Concomitant]
     Active Substance: TICAGRELOR
     Indication: STENT PLACEMENT
     Dosage: UNK
     Route: 048
  2. ATORVASTATIN [Concomitant]
     Active Substance: ATORVASTATIN
     Indication: STENT PLACEMENT
     Dosage: UNK
  3. DICLAC [Interacting]
     Active Substance: DICLOFENAC
     Indication: PAIN
     Dosage: 75 MG, UNK
     Route: 048
  4. ASPIRIN. [Concomitant]
     Active Substance: ASPIRIN
     Indication: STENT PLACEMENT
     Dosage: UNK
  5. PANTOPRAZOLE [Suspect]
     Active Substance: PANTOPRAZOLE
     Indication: PROPHYLAXIS
     Dosage: 40 MG, UNK
     Route: 048
  6. HEO421 [Concomitant]
     Indication: STENT PLACEMENT
     Dosage: UNK
     Route: 048
  7. TERAZOSIN [Concomitant]
     Active Substance: TERAZOSIN\TERAZOSIN HYDROCHLORIDE
     Dosage: UNK
     Route: 048

REACTIONS (7)
  - Vomiting [Not Recovered/Not Resolved]
  - Nausea [Not Recovered/Not Resolved]
  - Headache [Unknown]
  - Pyrexia [Not Recovered/Not Resolved]
  - Chills [Not Recovered/Not Resolved]
  - Arthralgia [Unknown]
  - Drug interaction [Unknown]

NARRATIVE: CASE EVENT DATE: 20171210
